FAERS Safety Report 5122520-7 (Version None)
Quarter: 2006Q4

REPORT INFORMATION
  Report Type: 
  Country: None (occurrence: None)
  Receive Date: 20061009
  Receipt Date: 20060925
  Transmission Date: 20070319
  Serious: Yes (Other)
  Sender: FDA-Public Use
  Company Number: PHRM2006FR02680

PATIENT
  Sex: Female
  Weight: 5 kg

DRUGS (1)
  1. SYNTOCINON [Suspect]
     Dosage: UNK, UNK
     Route: 064

REACTIONS (4)
  - ASSISTED DELIVERY [None]
  - BRACHIAL PLEXUS INJURY [None]
  - LARGE FOR DATES BABY [None]
  - SHOULDER DYSTOCIA [None]
